FAERS Safety Report 8914675 (Version 2)
Quarter: 2014Q1

REPORT INFORMATION
  Report Type: Report from Study
  Country: US (occurrence: US)
  Receive Date: 20121119
  Receipt Date: 20140319
  Transmission Date: 20141002
  Serious: Yes (Hospitalization, Other)
  Sender: FDA-Public Use
  Company Number: US-NAPPMUNDI-USA-2012-0095780

PATIENT
  Age: 50 Year
  Sex: Male

DRUGS (2)
  1. OXYCONTIN (NDA 22-272) [Suspect]
     Indication: PAIN
     Dosage: 400 MG, DAILY
     Route: 048
  2. OXYCONTIN (NDA 22-272) [Suspect]
     Indication: POST LAMINECTOMY SYNDROME
     Dosage: 60 MG, Q12H
     Route: 048
     Dates: start: 20140123, end: 20140223

REACTIONS (4)
  - Shoulder operation [Recovered/Resolved]
  - Neck surgery [Recovered/Resolved]
  - Medical device complication [Unknown]
  - Pain [Unknown]
